FAERS Safety Report 8935747 (Version 2)
Quarter: 2013Q1

REPORT INFORMATION
  Report Type: Report from Study
  Country: US (occurrence: US)
  Receive Date: 20121130
  Receipt Date: 20130131
  Transmission Date: 20140127
  Serious: Yes (Death, Hospitalization)
  Sender: FDA-Public Use
  Company Number: US-ABBOTT-12P-163-1013271-00

PATIENT
  Age: 63 Year
  Sex: Female

DRUGS (20)
  1. HUMIRA [Suspect]
     Indication: RHEUMATOID ARTHRITIS
     Dates: start: 20050301
  2. NITROSTAT [Concomitant]
     Indication: PRODUCT USED FOR UNKNOWN INDICATION
  3. ADVAIR UNSPEC [Concomitant]
     Indication: PRODUCT USED FOR UNKNOWN INDICATION
  4. SPIRIVA [Concomitant]
     Indication: PRODUCT USED FOR UNKNOWN INDICATION
  5. ALBUTEROL SULFATE [Concomitant]
     Indication: PRODUCT USED FOR UNKNOWN INDICATION
     Dosage: .03 MG/ML
  6. METOPROLOL [Concomitant]
     Indication: PRODUCT USED FOR UNKNOWN INDICATION
  7. METFORMIN HCL [Concomitant]
     Indication: PRODUCT USED FOR UNKNOWN INDICATION
  8. LISINOPRIL [Concomitant]
     Indication: PRODUCT USED FOR UNKNOWN INDICATION
  9. ISOSORBIDE MN [Concomitant]
     Indication: PRODUCT USED FOR UNKNOWN INDICATION
  10. RE DUALVIT PLUS [Concomitant]
     Indication: PRODUCT USED FOR UNKNOWN INDICATION
     Route: 048
  11. RANITIDINE [Concomitant]
     Indication: PRODUCT USED FOR UNKNOWN INDICATION
  12. PLAVIX [Concomitant]
     Indication: PRODUCT USED FOR UNKNOWN INDICATION
  13. PANTOPRAZOLE [Concomitant]
     Indication: PRODUCT USED FOR UNKNOWN INDICATION
  14. LIPITOR [Concomitant]
     Indication: PRODUCT USED FOR UNKNOWN INDICATION
  15. GLIPIZIDE [Concomitant]
     Indication: PRODUCT USED FOR UNKNOWN INDICATION
     Dosage: 1/2 TABLET DAILY
  16. POTASSIUM CL [Concomitant]
     Indication: PRODUCT USED FOR UNKNOWN INDICATION
  17. FUROSEMIDE [Concomitant]
     Indication: PRODUCT USED FOR UNKNOWN INDICATION
  18. PANGXA [Concomitant]
     Indication: PRODUCT USED FOR UNKNOWN INDICATION
  19. FLUOXETINE [Concomitant]
     Indication: PRODUCT USED FOR UNKNOWN INDICATION
     Dosage: AT BEDTIME
  20. PREDNISONE [Concomitant]
     Indication: PRODUCT USED FOR UNKNOWN INDICATION
     Dosage: TOOK 1/2 TABLET

REACTIONS (11)
  - Road traffic accident [Fatal]
  - Hallucination [Unknown]
  - Fall [Unknown]
  - Head injury [Unknown]
  - Excoriation [Unknown]
  - Joint swelling [Unknown]
  - Blood urine present [Unknown]
  - Restlessness [Unknown]
  - Foaming at mouth [Unknown]
  - Diarrhoea [Unknown]
  - Sepsis [Unknown]
